FAERS Safety Report 25154277 (Version 1)
Quarter: 2025Q2

REPORT INFORMATION
  Report Type: Spontaneous
  Country: US (occurrence: US)
  Receive Date: 20250403
  Receipt Date: 20250403
  Transmission Date: 20250717
  Serious: Yes (Hospitalization, Other)
  Sender: CHATTEM
  Company Number: US-OPELLA-2025OHG009196

PATIENT
  Age: 28 Year
  Sex: Female
  Weight: 61.28 kg

DRUGS (1)
  1. LEVOCETIRIZINE DIHYDROCHLORIDE [Suspect]
     Active Substance: LEVOCETIRIZINE DIHYDROCHLORIDE
     Indication: Product used for unknown indication
     Route: 065

REACTIONS (24)
  - Joint injury [Unknown]
  - Heart rate increased [Unknown]
  - Urinary retention [Unknown]
  - Contusion [Unknown]
  - Nodule [Unknown]
  - Pyrexia [Unknown]
  - Pain [Unknown]
  - Intervertebral disc protrusion [Unknown]
  - Weight decreased [Unknown]
  - Disturbance in attention [Unknown]
  - Aphasia [Unknown]
  - Pain [Unknown]
  - Nervous system disorder [Unknown]
  - Paraesthesia [Unknown]
  - Nightmare [Unknown]
  - Dry skin [Unknown]
  - Scab [Unknown]
  - Skin exfoliation [Unknown]
  - Skin irritation [Unknown]
  - Insomnia [Unknown]
  - Asthenia [Unknown]
  - Vomiting [Unknown]
  - Nausea [Unknown]
  - Fatigue [Unknown]

NARRATIVE: CASE EVENT DATE: 20240415
